FAERS Safety Report 20026772 (Version 1)
Quarter: 2021Q4

REPORT INFORMATION
  Report Type: Spontaneous
  Country: ES (occurrence: ES)
  Receive Date: 20211102
  Receipt Date: 20211102
  Transmission Date: 20220303
  Serious: Yes (Other)
  Sender: FDA-Public Use
  Company Number: ES-AEMPS-964898

PATIENT
  Age: 74 Year
  Sex: Male

DRUGS (5)
  1. OMEPRAZOLE [Suspect]
     Active Substance: OMEPRAZOLE
     Indication: Hiatus hernia
     Dosage: UNK
     Route: 065
     Dates: start: 20141022
  2. COMIRNATY [Suspect]
     Active Substance: TOZINAMERAN
     Indication: COVID-19 immunisation
     Dosage: 2 DOSES ADMINISTERED - ADMINISTRATION SITE: LEFT ARM ()
     Route: 065
     Dates: start: 20210412, end: 20210412
  3. SUMATRIPTAN (2596A) [Concomitant]
     Indication: Product used for unknown indication
     Dosage: UNK
     Route: 065
  4. FORMODUAL 100/6 microgramos/PULSACION SOLUCION PARA INHALACION EN E... [Concomitant]
     Indication: Product used for unknown indication
     Dosage: UNK
     Route: 065
  5. DESLORATADINA ACTAVIS 5 mg COMPRIMIDOS RECUBIERTOS CON PELICULA EFG [Concomitant]
     Indication: Product used for unknown indication
     Dosage: UNK
     Route: 065

REACTIONS (1)
  - Gynaecomastia [Not Recovered/Not Resolved]

NARRATIVE: CASE EVENT DATE: 20210412
